FAERS Safety Report 5642537-3 (Version None)
Quarter: 2008Q1

REPORT INFORMATION
  Report Type: 
  Country: None (occurrence: None)
  Receive Date: 20080227
  Receipt Date: 20080227
  Transmission Date: 20080703
  Serious: Yes (Hospitalization)
  Sender: FDA-Public Use
  Company Number: None

PATIENT
  Sex: Male
  Weight: 85.8 kg

DRUGS (3)
  1. CISPLATIN [Suspect]
     Indication: TONSIL CANCER
     Dosage: 100MG/M2 FU Q3WKS
     Dates: start: 20080121
  2. CISPLATIN [Suspect]
     Indication: TONSIL CANCER
     Dosage: 100MG/M2 FU Q3WKS
     Dates: start: 20080211
  3. CETUXIMAB [Suspect]
     Indication: TONSIL CANCER
     Dosage: 25MG/M2 FU QW
     Dates: start: 20071126

REACTIONS (4)
  - MUCOSAL INFLAMMATION [None]
  - ORAL INTAKE REDUCED [None]
  - PAIN [None]
  - PYREXIA [None]
